FAERS Safety Report 15622269 (Version 1)
Quarter: 2018Q4

REPORT INFORMATION
  Report Type: Spontaneous
  Country: ES (occurrence: ES)
  Receive Date: 20181115
  Receipt Date: 20181115
  Transmission Date: 20190205
  Serious: Yes (Other)
  Sender: FDA-Public Use
  Company Number: ES-PFIZER INC-2018465580

PATIENT
  Age: 84 Year
  Sex: Male

DRUGS (12)
  1. ALDACTONE [Suspect]
     Active Substance: SPIRONOLACTONE
     Indication: HYPERTENSION
     Dosage: 25 MG, 1X/DAY
     Route: 048
     Dates: start: 20180702, end: 20180904
  2. DUODART [Concomitant]
     Active Substance: DUTASTERIDE\TAMSULOSIN
     Dosage: 1 DF, 1X/DAY
     Route: 048
  3. ACIDO ACETILSALICILICO CINFA [Concomitant]
     Dosage: 100 MG, 1X/DAY
     Route: 048
     Dates: start: 20180406
  4. LOBIVON PLUS [Concomitant]
     Active Substance: HYDROCHLOROTHIAZIDE\NEBIVOLOL HYDROCHLORIDE
     Dosage: 0.5 DF, 1X/DAY
     Route: 048
     Dates: start: 20180505
  5. ROSUVASTATINE [ROSUVASTATIN] [Concomitant]
     Active Substance: ROSUVASTATIN
     Dosage: 10 MG, 1X/DAY
     Route: 048
     Dates: start: 20180406
  6. PREGABALINA CINFA [Concomitant]
     Dosage: 75 MG, 2X/DAY
     Route: 048
  7. PLAVIX [Concomitant]
     Active Substance: CLOPIDOGREL BISULFATE
     Dosage: 75 MG, 1X/DAY
     Route: 048
     Dates: start: 20180523
  8. ONYTEC [Concomitant]
     Route: 061
  9. OMEPRAZOL CINFAMED [Concomitant]
     Dosage: 20 MG, 1X/DAY
     Route: 048
     Dates: start: 20180406
  10. RAMIPRIL NORMON [Concomitant]
     Dosage: 2.5 MG, 1X/DAY
     Route: 048
     Dates: start: 20180406
  11. FUROSEMIDA CINFA [Concomitant]
     Active Substance: FUROSEMIDE
     Dosage: 40 MG, 1X/DAY
     Route: 048
     Dates: start: 20180406
  12. DULOXETINE [DULOXETINA CINFA] [Concomitant]
     Dosage: 30 MG, 1X/DAY
     Route: 048

REACTIONS (1)
  - Gynaecomastia [Unknown]

NARRATIVE: CASE EVENT DATE: 20180904
